FAERS Safety Report 5984263-7 (Version None)
Quarter: 2008Q4

REPORT INFORMATION
  Report Type: 
  Country: None (occurrence: None)
  Receive Date: 20081208
  Receipt Date: 20081203
  Transmission Date: 20090506
  Serious: Yes (Hospitalization)
  Sender: FDA-Public Use
  Company Number: JP-ASTRAZENECA-2008AP07719

PATIENT
  Age: 66 Year
  Sex: Male
  Weight: 64 kg

DRUGS (4)
  1. OMEPRAL TABLETS [Suspect]
     Indication: GASTRITIS
     Dosage: DOSE UNKNOWN
     Route: 048
     Dates: start: 20080909
  2. GASTER D [Suspect]
     Indication: GASTRITIS
     Route: 048
     Dates: end: 20080723
  3. UNKNOWNDRUG [Suspect]
     Indication: DIABETES MELLITUS
     Dosage: DOSE UNKNOWN
     Route: 048
     Dates: end: 20080723
  4. URSO 250 [Concomitant]
     Indication: HEPATITIS
     Route: 048
     Dates: start: 20080723, end: 20080901

REACTIONS (1)
  - HEPATITIS [None]
